FAERS Safety Report 11763687 (Version 1)
Quarter: 2015Q4

REPORT INFORMATION
  Report Type: Spontaneous
  Country: US (occurrence: US)
  Receive Date: 20151120
  Receipt Date: 20151120
  Transmission Date: 20160304
  Serious: No
  Sender: FDA-Public Use
  Company Number: US-ELI_LILLY_AND_COMPANY-US201304004124

PATIENT
  Age: 67 Year
  Sex: Female

DRUGS (2)
  1. GLUTEN [Concomitant]
     Active Substance: WHEAT GLUTEN
  2. FORTEO [Suspect]
     Active Substance: TERIPARATIDE
     Indication: OSTEOPOROSIS
     Dosage: UNK
     Route: 065
     Dates: start: 20110310, end: 20130308

REACTIONS (5)
  - Blister [Unknown]
  - Back pain [Recovered/Resolved]
  - Road traffic accident [Unknown]
  - Diarrhoea [Recovered/Resolved]
  - Wrist fracture [Unknown]

NARRATIVE: CASE EVENT DATE: 20110310
